FAERS Safety Report 21503238 (Version 1)
Quarter: 2022Q4

REPORT INFORMATION
  Report Type: Spontaneous
  Country: US (occurrence: None)
  Receive Date: 20221024
  Receipt Date: 20221024
  Transmission Date: 20230113
  Serious: Yes (Hospitalization)
  Sender: FDA-Public Use
  Company Number: None

PATIENT
  Age: 70 Year
  Sex: Female

DRUGS (1)
  1. AMBRISENTAN [Suspect]
     Active Substance: AMBRISENTAN
     Indication: Pulmonary arterial hypertension
     Dosage: FREQUENCY : DAILY;?
     Route: 048
     Dates: start: 20210922

REACTIONS (14)
  - Tachycardia [None]
  - Lactic acidosis [None]
  - Blood bilirubin increased [None]
  - Gastroenteritis [None]
  - Cough [None]
  - Staphylococcal infection [None]
  - Brain natriuretic peptide increased [None]
  - Urine leukocyte esterase positive [None]
  - White blood cells urine positive [None]
  - Oxygen saturation decreased [None]
  - Chills [None]
  - Vomiting [None]
  - Diarrhoea [None]
  - Dyspnoea exertional [None]

NARRATIVE: CASE EVENT DATE: 20221001
